FAERS Safety Report 15305996 (Version 2)
Quarter: 2018Q3

REPORT INFORMATION
  Report Type: Spontaneous
  Country: US (occurrence: US)
  Receive Date: 20180822
  Receipt Date: 20180824
  Transmission Date: 20181010
  Serious: No
  Sender: FDA-Public Use
  Company Number: US-BAYER-2018-157865

PATIENT
  Age: 73 Year
  Sex: Female
  Weight: 70.3 kg

DRUGS (3)
  1. CLARITIN LIQUI?GELS [Suspect]
     Active Substance: LORATADINE
     Indication: NASOPHARYNGITIS
  2. ESTRACE [Concomitant]
     Active Substance: ESTRADIOL
  3. CLARITIN LIQUI?GELS [Suspect]
     Active Substance: LORATADINE
     Indication: ALLERGIC RESPIRATORY SYMPTOM
     Dosage: TOOK 2 THE SAME DAY DOSE
     Route: 048
     Dates: start: 20180821, end: 20180821

REACTIONS (2)
  - Overdose [Recovered/Resolved]
  - Extra dose administered [Recovered/Resolved]

NARRATIVE: CASE EVENT DATE: 20180821
